FAERS Safety Report 24977447 (Version 3)
Quarter: 2025Q1

REPORT INFORMATION
  Report Type: Spontaneous
  Country: AT (occurrence: AT)
  Receive Date: 20250217
  Receipt Date: 20250331
  Transmission Date: 20250408
  Serious: Yes (Hospitalization, Other)
  Sender: BIOVITRUM
  Company Number: AT-BIOVITRUM-2025-AT-002105

PATIENT
  Age: 61 Year
  Sex: Female

DRUGS (1)
  1. DOPTELET [Suspect]
     Active Substance: AVATROMBOPAG MALEATE
     Indication: Immune thrombocytopenia

REACTIONS (7)
  - Antiphospholipid syndrome [Recovering/Resolving]
  - Acute kidney injury [Recovering/Resolving]
  - Myocardial necrosis marker increased [Recovering/Resolving]
  - Mitral valve incompetence [Recovering/Resolving]
  - Condition aggravated [Recovering/Resolving]
  - Ischaemic cerebral infarction [Recovering/Resolving]
  - Antiphospholipid antibodies positive [Not Recovered/Not Resolved]
